FAERS Safety Report 21812452 (Version 2)
Quarter: 2023Q2

REPORT INFORMATION
  Report Type: Spontaneous
  Country: US (occurrence: US)
  Receive Date: 20230103
  Receipt Date: 20230406
  Transmission Date: 20230722
  Serious: Yes (Other)
  Sender: FDA-Public Use
  Company Number: US-PFIZER INC-PV202200131173

PATIENT
  Age: 53 Year
  Sex: Female

DRUGS (6)
  1. XELJANZ XR [Suspect]
     Active Substance: TOFACITINIB CITRATE
     Indication: Systemic lupus erythematosus
     Dosage: 11 MG, 1X/DAY
     Route: 048
     Dates: start: 202212
  2. XELJANZ XR [Suspect]
     Active Substance: TOFACITINIB CITRATE
     Indication: Osteoarthritis
  3. LYRICA [Concomitant]
     Active Substance: PREGABALIN
     Dosage: 50 MG, 2X/DAY
     Route: 048
  4. HYDROXYCHLOROQUINE SULFATE [Concomitant]
     Active Substance: HYDROXYCHLOROQUINE SULFATE
     Dosage: 200 MG, 2X/DAY
     Route: 048
  5. GELSYN 3 [Concomitant]
     Dosage: 316.8 MG/2ML SOLUTION PREFILLED SYRINGE BILATERAL INTRA-ARTICULAR EVERY WEEK FOR 3 WEEKS)
     Route: 014
  6. PREDNISONE [Concomitant]
     Active Substance: PREDNISONE
     Dosage: 5 MG, 1X/DAY
     Route: 048

REACTIONS (14)
  - Hypertension [Unknown]
  - Off label use [Unknown]
  - Malaise [Unknown]
  - Arthralgia [Recovering/Resolving]
  - Back pain [Unknown]
  - Muscle spasms [Unknown]
  - Asthenia [Unknown]
  - Mouth ulceration [Unknown]
  - Dry mouth [Unknown]
  - Condition aggravated [Recovering/Resolving]
  - Photosensitivity reaction [Unknown]
  - Pain in extremity [Unknown]
  - Pain [Unknown]
  - Joint effusion [Unknown]

NARRATIVE: CASE EVENT DATE: 20221201
